FAERS Safety Report 5421409-3 (Version None)
Quarter: 2007Q3

REPORT INFORMATION
  Report Type: 
  Country: None (occurrence: None)
  Receive Date: 20070821
  Receipt Date: 20070809
  Transmission Date: 20080115
  Serious: Yes (Hospitalization)
  Sender: FDA-Public Use
  Company Number: AT-ELI_LILLY_AND_COMPANY-AT200708001901

PATIENT
  Age: 60 Year
  Sex: Female
  Weight: 100 kg

DRUGS (11)
  1. CYMBALTA [Suspect]
     Indication: DEPRESSION
     Dosage: 60 MG, DAILY (1/D)
     Dates: start: 20070301, end: 20070717
  2. CYMBALTA [Suspect]
     Dosage: 120 MG, DAILY (1/D)
     Dates: start: 20070717, end: 20070101
  3. CYMBALTA [Suspect]
     Dosage: 60 MG, DAILY (1/D)
     Dates: start: 20070101
  4. SULFAMETROLE [Concomitant]
     Dates: start: 20070724, end: 20070729
  5. ABILIFY [Concomitant]
     Dosage: 15 MG, UNK
  6. GLUCOPHAGE [Concomitant]
     Dosage: 1000 MG, UNK
  7. THROMBO ASS [Concomitant]
     Dosage: 100 MG, UNK
  8. SIMVASTATIN [Concomitant]
     Dosage: 40 MG, UNK
  9. QUILONORM RETARD [Concomitant]
     Dosage: 450 MG, 2/D
     Dates: start: 20070424
  10. TRAZODONE HCL [Concomitant]
     Dosage: 300 MG, DAILY (1/D)
  11. DOMINAL FORTE [Concomitant]
     Dosage: 80 MG, DAILY (1/D)

REACTIONS (2)
  - DEPRESSION [None]
  - HEPATIC ENZYME INCREASED [None]
